FAERS Safety Report 8256327-9 (Version None)
Quarter: 2012Q2

REPORT INFORMATION
  Report Type: 
  Country: None (occurrence: None)
  Receive Date: 20120403
  Receipt Date: 20120323
  Transmission Date: 20120825
  Serious: Yes (Life-Threatening, Other)
  Sender: FDA-Public Use
  Company Number: FR-GENZYME-THYM-1003191

PATIENT
  Sex: Female

DRUGS (7)
  1. VFEND [Suspect]
     Indication: ANTI-INFECTIVE THERAPY
     Dosage: 400 MG, QD
     Route: 042
     Dates: start: 20111230, end: 20120115
  2. FLUDARABINE PHOSPHATE [Suspect]
     Indication: BONE MARROW CONDITIONING REGIMEN
     Dosage: 68 MG, UNK
     Route: 042
     Dates: start: 20120105, end: 20120108
  3. TARGOCID [Suspect]
     Indication: ANTIBIOTIC THERAPY
     Dosage: 400 MG, UNK
     Route: 042
     Dates: start: 20111227, end: 20120115
  4. THYMOGLOBULIN [Suspect]
     Indication: BONE MARROW CONDITIONING REGIMEN
     Dosage: 476 MG, UNK
     Route: 042
     Dates: start: 20120109, end: 20120110
  5. NEORAL [Suspect]
     Indication: PRODUCT USED FOR UNKNOWN INDICATION
     Dosage: UNK
     Route: 065
     Dates: start: 20111029, end: 20120115
  6. CYCLOPHOSPHAMIDE [Suspect]
     Indication: BONE MARROW CONDITIONING REGIMEN
     Dosage: 1905 MG, UNK
     Route: 042
     Dates: start: 20120105, end: 20120106
  7. CEFEPIME [Suspect]
     Indication: ANTIBIOTIC THERAPY
     Dosage: 6 G, UNK
     Route: 042
     Dates: start: 20111230, end: 20120115

REACTIONS (14)
  - CONFUSIONAL STATE [None]
  - DYSKINESIA [None]
  - DISORIENTATION [None]
  - SPEECH DISORDER [None]
  - DIPLEGIA [None]
  - HYPOTONIA [None]
  - ALTERED STATE OF CONSCIOUSNESS [None]
  - MOVEMENT DISORDER [None]
  - SUBDURAL HAEMORRHAGE [None]
  - APHASIA [None]
  - EXTENSOR PLANTAR RESPONSE [None]
  - DIALYSIS [None]
  - STEM CELL TRANSPLANT [None]
  - FUNGAEMIA [None]
